FAERS Safety Report 7340513-6 (Version None)
Quarter: 2011Q1

REPORT INFORMATION
  Report Type: 
  Country: None (occurrence: None)
  Receive Date: 20110309
  Receipt Date: 20110223
  Transmission Date: 20110831
  Serious: Yes (Other)
  Sender: FDA-Public Use
  Company Number: PHHY2011CO15879

PATIENT
  Sex: Female

DRUGS (2)
  1. ACLASTA [Suspect]
     Indication: OSTEOPOROSIS
     Dosage: 5 MG/100 ML
     Route: 042
     Dates: start: 20110221
  2. ACETAMINOPHEN [Concomitant]
     Dosage: 1 MG

REACTIONS (3)
  - CHEST PAIN [None]
  - RESPIRATORY DISTRESS [None]
  - FEELING ABNORMAL [None]
